FAERS Safety Report 17214783 (Version 1)
Quarter: 2019Q4

REPORT INFORMATION
  Report Type: Spontaneous
  Country: FR (occurrence: FR)
  Receive Date: 20191230
  Receipt Date: 20191230
  Transmission Date: 20200122
  Serious: Yes (Congenital Anomaly)
  Sender: FDA-Public Use
  Company Number: FR-US-PROVELL PHARMACEUTICALS LLC-E2B_90073411

PATIENT
  Age: 0 Day
  Sex: Female
  Weight: 3.2 kg

DRUGS (1)
  1. LEVOTHYROX [Suspect]
     Active Substance: LEVOTHYROXINE
     Indication: HYPOTHYROIDISM
     Route: 064

REACTIONS (4)
  - Craniosynostosis [Not Recovered/Not Resolved]
  - Persistent left superior vena cava [Not Recovered/Not Resolved]
  - Thoracic outlet syndrome [Not Recovered/Not Resolved]
  - Oesophageal atresia [Not Recovered/Not Resolved]

NARRATIVE: CASE EVENT DATE: 20190817
